FAERS Safety Report 23430747 (Version 2)
Quarter: 2024Q1

REPORT INFORMATION
  Report Type: Report from Study
  Country: US (occurrence: US)
  Receive Date: 20240123
  Receipt Date: 20240214
  Transmission Date: 20240410
  Serious: Yes (Other)
  Sender: FDA-Public Use
  Company Number: US-ABBVIE-5594607

PATIENT
  Sex: Female
  Weight: 53 kg

DRUGS (2)
  1. SKYRIZI [Suspect]
     Active Substance: RISANKIZUMAB-RZAA
     Indication: Psoriasis
     Route: 058
     Dates: start: 20240118
  2. Provitalize [Concomitant]
     Indication: Product used for unknown indication
     Dosage: DOSE 1?ONCE DAILY
     Route: 048
     Dates: start: 20230101, end: 20240208

REACTIONS (1)
  - Hysterectomy [Recovering/Resolving]
